FAERS Safety Report 6531954-5 (Version None)
Quarter: 2010Q1

REPORT INFORMATION
  Report Type: 
  Country: None (occurrence: None)
  Receive Date: 20100107
  Receipt Date: 20100107
  Transmission Date: 20100710
  Serious: Yes (Other)
  Sender: FDA-Public Use
  Company Number: None

PATIENT
  Age: 47 Year
  Sex: Female
  Weight: 77.5651 kg

DRUGS (2)
  1. MICAFUBGIN 100MG ASTELLAS [Suspect]
     Indication: FUNGAL OESOPHAGITIS
     Dosage: 150MG DAILY IV
     Route: 042
     Dates: start: 20091119, end: 20091129
  2. MICAFUBGIN [Suspect]

REACTIONS (6)
  - ABDOMINAL PAIN [None]
  - ALANINE AMINOTRANSFERASE INCREASED [None]
  - ALCOHOL USE [None]
  - ASPARTATE AMINOTRANSFERASE INCREASED [None]
  - BLOOD ALKALINE PHOSPHATASE INCREASED [None]
  - DEPRESSION [None]
